FAERS Safety Report 22000606 (Version 1)
Quarter: 2023Q1

REPORT INFORMATION
  Report Type: Spontaneous
  Country: US (occurrence: None)
  Receive Date: 20230215
  Receipt Date: 20230215
  Transmission Date: 20230418
  Serious: Yes (unspecified)
  Sender: FDA-Public Use
  Company Number: None

PATIENT
  Age: 61 Year
  Sex: Female
  Weight: 48.15 kg

DRUGS (1)
  1. ATORVASTATIN [Suspect]
     Active Substance: ATORVASTATIN
     Indication: Hyperlipidaemia
     Dosage: 90 TABLETS AT BEDTIME ORAL?
     Route: 048
     Dates: start: 20230105, end: 20230208

REACTIONS (6)
  - Abdominal distension [None]
  - Eructation [None]
  - Flatulence [None]
  - Hepatomegaly [None]
  - Product odour abnormal [None]
  - Product substitution issue [None]

NARRATIVE: CASE EVENT DATE: 20230209
